FAERS Safety Report 19125012 (Version 1)
Quarter: 2021Q2

REPORT INFORMATION
  Report Type: Spontaneous
  Country: CN (occurrence: CN)
  Receive Date: 20210412
  Receipt Date: 20210412
  Transmission Date: 20210717
  Serious: Yes (Hospitalization, Other)
  Sender: FDA-Public Use
  Company Number: CN-ELI_LILLY_AND_COMPANY-CN202104000283

PATIENT
  Age: 80 Year
  Sex: Female
  Weight: 65 kg

DRUGS (4)
  1. HUMALOG [Suspect]
     Active Substance: INSULIN LISPRO
     Dosage: 12 U, DAILY (BEFORE DINNER)
     Route: 058
     Dates: start: 2010, end: 2012
  2. HUMULIN R [Suspect]
     Active Substance: INSULIN HUMAN
     Indication: DIABETES MELLITUS
     Dosage: 10 U, EACH MORNING
     Route: 058
     Dates: start: 2008, end: 2010
  3. HUMALOG [Suspect]
     Active Substance: INSULIN LISPRO
     Indication: DIABETES MELLITUS
     Dosage: 10 U, EACH MORNING
     Route: 058
     Dates: start: 2010, end: 2012
  4. HUMULIN R [Suspect]
     Active Substance: INSULIN HUMAN
     Dosage: 12 U, DAILY (BEFORE DINNER)
     Route: 058
     Dates: start: 2008, end: 2010

REACTIONS (5)
  - Retinal haemorrhage [Unknown]
  - Blood glucose abnormal [Unknown]
  - Hypoaesthesia [Unknown]
  - Cataract [Unknown]
  - Blindness [Unknown]
